FAERS Safety Report 5802358-5 (Version None)
Quarter: 2008Q3

REPORT INFORMATION
  Report Type: 
  Country: None (occurrence: None)
  Receive Date: 20080707
  Receipt Date: 20080703
  Transmission Date: 20090109
  Serious: Yes (Death, Hospitalization)
  Sender: FDA-Public Use
  Company Number: PHEH2008US02693

PATIENT
  Sex: Female

DRUGS (12)
  1. RECLAST [Suspect]
     Indication: OSTEOPOROSIS
     Dosage: 5 MG, ONCE/SINGLE
     Dates: start: 20071109
  2. ALBUTEROL [Concomitant]
  3. OSCAL 500-D [Concomitant]
  4. FOLIC ACID [Concomitant]
  5. ADVAIR DISKUS 100/50 [Concomitant]
  6. SPIRIVA [Concomitant]
  7. VITAMIN B-12 [Concomitant]
     Dosage: MONTHLY
  8. TYLENOL [Concomitant]
  9. VITAMIN CAP [Concomitant]
  10. NEXIUM [Concomitant]
  11. CELEBREX [Concomitant]
  12. CITRACAL + D [Concomitant]
     Dosage: 50,000 IU/WEEK

REACTIONS (16)
  - ARTERIOSCLEROSIS [None]
  - ATRIAL FIBRILLATION [None]
  - BRADYCARDIA [None]
  - BRONCHIAL WALL THICKENING [None]
  - CARDIAC ARREST [None]
  - CARDIAC FAILURE CONGESTIVE [None]
  - DYSPNOEA [None]
  - EMPHYSEMA [None]
  - HYPONATRAEMIA [None]
  - LUNG INFILTRATION [None]
  - MYOCARDIAL INFARCTION [None]
  - PITTING OEDEMA [None]
  - PLEURAL EFFUSION [None]
  - PNEUMONIA [None]
  - PULMONARY OEDEMA [None]
  - RHONCHI [None]
